FAERS Safety Report 9112978 (Version 3)
Quarter: 2013Q2

REPORT INFORMATION
  Report Type: Spontaneous
  Country: US (occurrence: US)
  Receive Date: 20130211
  Receipt Date: 20130419
  Transmission Date: 20140414
  Serious: Yes (Other)
  Sender: FDA-Public Use
  Company Number: US-PFIZER INC-2013053355

PATIENT
  Age: 8 Year
  Sex: Female
  Weight: 24 kg

DRUGS (1)
  1. JUNIOR STRENGTH ADVIL [Suspect]
     Indication: PYREXIA
     Dosage: 200 MG (TWO 100MG TABLETS), ONCE A DAY
     Route: 048
     Dates: start: 20130206, end: 20130207

REACTIONS (6)
  - Lip swelling [Recovered/Resolved]
  - Pyrexia [Not Recovered/Not Resolved]
  - Urticaria [Recovered/Resolved]
  - Pruritus [Unknown]
  - Swollen tongue [Recovered/Resolved]
  - Drug ineffective [Unknown]
